FAERS Safety Report 6796301-2 (Version None)
Quarter: 2010Q2

REPORT INFORMATION
  Report Type: 
  Country: None (occurrence: None)
  Receive Date: 20100624
  Receipt Date: 20100624
  Transmission Date: 20101027
  Serious: Yes (Other)
  Sender: FDA-Public Use
  Company Number: None

PATIENT
  Sex: Female
  Weight: 100.2449 kg

DRUGS (1)
  1. LEVOTHYROXINE SODIUM [Suspect]

REACTIONS (3)
  - BLOOD THYROID STIMULATING HORMONE ABNORMAL [None]
  - DRUG EFFECT DECREASED [None]
  - PRODUCT SUBSTITUTION ISSUE [None]
